FAERS Safety Report 12212424 (Version 1)
Quarter: 2016Q1

REPORT INFORMATION
  Report Type: Spontaneous
  Country: US (occurrence: US)
  Receive Date: 20160326
  Receipt Date: 20160326
  Transmission Date: 20160526
  Serious: Yes (Hospitalization)
  Sender: FDA-Public Use
  Company Number: US-ACCORD-038997

PATIENT
  Age: 62 Year
  Sex: Female

DRUGS (3)
  1. GEMCITABINE/GEMCITABINE HYDROCHLORIDE [Suspect]
     Active Substance: GEMCITABINE\GEMCITABINE HYDROCHLORIDE
     Indication: PANCREATIC CARCINOMA METASTATIC
     Dosage: SECOND DOSE
     Route: 042
  2. ONDANSETRON [Concomitant]
     Active Substance: ONDANSETRON
     Indication: SUPPORTIVE CARE
  3. DEXAMETHASONE. [Concomitant]
     Active Substance: DEXAMETHASONE
     Indication: SUPPORTIVE CARE

REACTIONS (1)
  - Pseudocellulitis [Recovering/Resolving]
